FAERS Safety Report 6946048-4 (Version None)
Quarter: 2010Q3

REPORT INFORMATION
  Report Type: 
  Country: None (occurrence: None)
  Receive Date: 20100827
  Receipt Date: 20100415
  Transmission Date: 20110219
  Serious: No
  Sender: FDA-Public Use
  Company Number: A0855235A

PATIENT
  Age: 37 Year
  Sex: Female

DRUGS (2)
  1. ACYCLOVIR SODIUM [Suspect]
     Indication: GENITAL HERPES
     Dosage: 500MG PER DAY
     Route: 048
     Dates: start: 20050101, end: 20050201
  2. MULTIPLE VITAMIN [Concomitant]

REACTIONS (1)
  - HERPES VIRUS INFECTION [None]
